FAERS Safety Report 9100715 (Version 1)
Quarter: 2013Q1

REPORT INFORMATION
  Report Type: Spontaneous
  Country: MX (occurrence: MX)
  Receive Date: 20130214
  Receipt Date: 20130214
  Transmission Date: 20140127
  Serious: Yes (Hospitalization, Other)
  Sender: FDA-Public Use
  Company Number: PHHY2013MX013396

PATIENT
  Age: 68 Year
  Sex: Female

DRUGS (6)
  1. ONBREZ [Suspect]
     Indication: CHRONIC OBSTRUCTIVE PULMONARY DISEASE
     Dosage: 150 UG, QD
  2. ONBREZ [Suspect]
     Dosage: 300 UG, UNK
     Dates: start: 2011
  3. ONBREZ [Suspect]
     Dosage: 150 UG, UNK
  4. MIFLONIDE [Suspect]
     Indication: RESPIRATORY DISORDER
     Dosage: UNK
     Dates: start: 201209
  5. AVAMYS [Concomitant]
     Indication: NASAL DRYNESS
     Dosage: UNK
     Dates: start: 2011
  6. RINELON [Concomitant]
     Indication: NASAL DRYNESS

REACTIONS (3)
  - Dyspnoea [Recovered/Resolved]
  - Bronchitis [Recovered/Resolved]
  - Tremor [Recovered/Resolved]
